FAERS Safety Report 4582557-3 (Version None)
Quarter: 2005Q1

REPORT INFORMATION
  Report Type: 
  Country: None (occurrence: None)
  Receive Date: 20050215
  Receipt Date: 20050128
  Transmission Date: 20050727
  Serious: Yes (Hospitalization)
  Sender: FDA-Public Use
  Company Number: PHBS2005JP01695

PATIENT
  Age: 2 Year
  Sex: Male

DRUGS (1)
  1. ZADITEN [Suspect]
     Indication: DERMATITIS ATOPIC
     Dosage: 1 MG, QD
     Route: 048
     Dates: start: 20040101, end: 20050119

REACTIONS (1)
  - CYSTITIS HAEMORRHAGIC [None]
